FAERS Safety Report 7491207-8 (Version None)
Quarter: 2011Q2

REPORT INFORMATION
  Report Type: 
  Country: None (occurrence: None)
  Receive Date: 20110518
  Receipt Date: 20110518
  Transmission Date: 20111010
  Serious: Yes (Life-Threatening, Hospitalization)
  Sender: FDA-Public Use
  Company Number: None

PATIENT
  Age: 85 Year
  Sex: Female
  Weight: 72.5 kg

DRUGS (14)
  1. LOSOPT [Concomitant]
  2. ERLOTINIB HYDROCHLORIDE [Suspect]
     Indication: LUNG NEOPLASM MALIGNANT
     Dosage: 150 MG QD PO WEEKS
     Route: 048
     Dates: start: 20110318, end: 20110506
  3. FERROUS SULFATE TAB [Concomitant]
  4. BENICAR [Concomitant]
  5. XYPREXA [Concomitant]
  6. COMPAZINE [Concomitant]
  7. CLEOCIN !% GEL [Concomitant]
  8. FULVESTRANT [Suspect]
     Dosage: 500 MG Q MONTH IM WEEKS
     Route: 030
     Dates: start: 20110318, end: 20110506
  9. PLAVIX [Concomitant]
  10. LOTREL [Concomitant]
  11. ACTOS 15 [Concomitant]
  12. IMODIUM [Concomitant]
  13. METFORMIN HCL [Concomitant]
  14. SIMVASTATIN [Concomitant]

REACTIONS (6)
  - HYPOTENSION [None]
  - RENAL FAILURE ACUTE [None]
  - ASTHENIA [None]
  - DIARRHOEA [None]
  - DECREASED APPETITE [None]
  - URINARY TRACT INFECTION [None]
